FAERS Safety Report 4698063-1 (Version None)
Quarter: 2005Q2

REPORT INFORMATION
  Report Type: 
  Country: None (occurrence: None)
  Receive Date: 20050622
  Receipt Date: 20050622
  Transmission Date: 20051028
  Serious: Yes (Death)
  Sender: FDA-Public Use
  Company Number: None

PATIENT
  Sex: Male
  Weight: 23.3 kg

DRUGS (4)
  1. CYTARABINE [Suspect]
     Indication: ACUTE MYELOID LEUKAEMIA
     Dosage: 1870 MG
     Dates: start: 20050523, end: 20050602
  2. DAUNORUBICIN [Suspect]
     Dosage: 135 MG
     Dates: start: 20050524, end: 20050528
  3. ETOPOSIDE [Suspect]
     Dosage: 450 MG
     Dates: start: 20050524, end: 20050528
  4. GEMTUZUMAB ZOGAMICIN [Suspect]
     Dosage: 2.7 MG
     Dates: start: 20050529, end: 20050529

REACTIONS (9)
  - CARDIAC ARREST [None]
  - COLITIS [None]
  - EROSIVE OESOPHAGITIS [None]
  - MULTI-ORGAN FAILURE [None]
  - NEUTROPENIA [None]
  - OESOPHAGEAL PERFORATION [None]
  - PNEUMONIA [None]
  - PYREXIA [None]
  - SHOCK [None]
